FAERS Safety Report 7880125-9 (Version None)
Quarter: 2011Q4

REPORT INFORMATION
  Report Type: 
  Country: None (occurrence: None)
  Receive Date: 20111101
  Receipt Date: 20111028
  Transmission Date: 20120403
  Serious: Yes (Life-Threatening, Hospitalization, Other)
  Sender: FDA-Public Use
  Company Number: US-ASTRAZENECA-2011SE55879

PATIENT
  Age: 46 Year
  Sex: Male
  Weight: 72.6 kg

DRUGS (8)
  1. SEROQUEL [Suspect]
     Route: 048
  2. CYMBALTA [Concomitant]
     Route: 048
     Dates: start: 20091027, end: 20110708
  3. SEROQUEL [Suspect]
     Route: 048
     Dates: start: 20110510, end: 20110708
  4. AMBIEN [Suspect]
     Route: 048
     Dates: start: 20091006, end: 20110708
  5. SEROQUEL [Suspect]
     Route: 048
  6. SEROQUEL [Suspect]
     Route: 048
  7. SEROQUEL [Suspect]
     Route: 048
     Dates: start: 20110608, end: 20110708
  8. TRAZODONE HCL [Concomitant]
     Route: 048
     Dates: start: 20110501, end: 20110708

REACTIONS (5)
  - SUICIDE ATTEMPT [None]
  - INCORRECT DOSE ADMINISTERED [None]
  - FOOT FRACTURE [None]
  - WRONG TECHNIQUE IN DRUG USAGE PROCESS [None]
  - HEPATITIS VIRAL [None]
